FAERS Safety Report 14290375 (Version 2)
Quarter: 2018Q2

REPORT INFORMATION
  Report Type: Spontaneous
  Country: JP (occurrence: JP)
  Receive Date: 20171215
  Receipt Date: 20180404
  Transmission Date: 20180711
  Serious: Yes (Other)
  Sender: FDA-Public Use
  Company Number: JP-BAYER-2017-236873

PATIENT

DRUGS (1)
  1. NEXAVAR [Suspect]
     Active Substance: SORAFENIB
     Indication: HEPATOCELLULAR CARCINOMA
     Dosage: 400 MG, QD
     Route: 048
     Dates: start: 20171201

REACTIONS (3)
  - Inappropriate schedule of drug administration [None]
  - Nephrotic syndrome [Recovered/Resolved]
  - Off label use [None]

NARRATIVE: CASE EVENT DATE: 20171201
